FAERS Safety Report 13411016 (Version 2)
Quarter: 2017Q4

REPORT INFORMATION
  Report Type: Spontaneous
  Country: US (occurrence: US)
  Receive Date: 20170406
  Receipt Date: 20171123
  Transmission Date: 20180320
  Serious: No
  Sender: FDA-Public Use
  Company Number: US-JNJFOC-20170304785

PATIENT
  Sex: Male

DRUGS (8)
  1. RISPERIDONE. [Suspect]
     Active Substance: RISPERIDONE
     Indication: AFFECTIVE DISORDER
     Dosage: IN VARYING DOSES OF 02 AND 04 MG
     Route: 048
     Dates: start: 20120302
  2. RISPERDAL [Suspect]
     Active Substance: RISPERIDONE
     Indication: AFFECTIVE DISORDER
     Dosage: IN VARYING DOSES OF 01, 02, 03 AND 04 MG
     Route: 048
     Dates: start: 20060303, end: 20071118
  3. RISPERIDONE. [Suspect]
     Active Substance: RISPERIDONE
     Indication: BIPOLAR DISORDER
     Dosage: IN VARYING DOSES OF 02 AND 04 MG
     Route: 048
     Dates: start: 20080820, end: 20090216
  4. INVEGA [Suspect]
     Active Substance: PALIPERIDONE
     Indication: AFFECTIVE DISORDER
     Dosage: IN VARYING DOSES OF 03 MG AND 06 MG
     Route: 048
     Dates: start: 20090414, end: 20100827
  5. RISPERDAL [Suspect]
     Active Substance: RISPERIDONE
     Indication: BIPOLAR DISORDER
     Dosage: IN VARYING DOSES OF 01, 02, 03 AND 04 MG
     Route: 048
     Dates: start: 20060303, end: 20071118
  6. INVEGA [Suspect]
     Active Substance: PALIPERIDONE
     Indication: BIPOLAR DISORDER
     Dosage: IN VARYING DOSES OF 03 MG AND 06 MG
     Route: 048
     Dates: start: 20090414, end: 20100827
  7. RISPERIDONE. [Suspect]
     Active Substance: RISPERIDONE
     Indication: AFFECTIVE DISORDER
     Dosage: IN VARYING DOSES OF 02 AND 04 MG
     Route: 048
     Dates: start: 20080820, end: 20090216
  8. RISPERIDONE. [Suspect]
     Active Substance: RISPERIDONE
     Indication: BIPOLAR DISORDER
     Dosage: IN VARYING DOSES OF 02 AND 04 MG
     Route: 048
     Dates: start: 20120302

REACTIONS (2)
  - Gynaecomastia [Unknown]
  - Emotional disorder [Unknown]
